FAERS Safety Report 23784419 (Version 1)
Quarter: 2024Q2

REPORT INFORMATION
  Report Type: Spontaneous
  Country: US (occurrence: None)
  Receive Date: 20240425
  Receipt Date: 20240425
  Transmission Date: 20240716
  Serious: Yes (Hospitalization)
  Sender: FDA-Public Use
  Company Number: None

PATIENT
  Age: 69 Year
  Sex: Male
  Weight: 80.7 kg

DRUGS (1)
  1. CILTACABTAGENE AUTOLEUCEL [Suspect]
     Active Substance: CILTACABTAGENE AUTOLEUCEL
     Indication: Plasma cell myeloma
     Dosage: 1 TOT-TOTAL ONCE INTRAVENOUS?
     Route: 042
     Dates: start: 20240213, end: 20240213

REACTIONS (2)
  - Cytokine release syndrome [None]
  - Neurotoxicity [None]

NARRATIVE: CASE EVENT DATE: 20240219
